FAERS Safety Report 23441223 (Version 1)
Quarter: 2024Q1

REPORT INFORMATION
  Report Type: Other
  Country: US (occurrence: None)
  Receive Date: 20240125
  Receipt Date: 20240125
  Transmission Date: 20240410
  Serious: No
  Sender: FDA-Public Use
  Company Number: US-ROCHE-3497785

PATIENT
  Age: 55 Year
  Sex: Female
  Weight: 72.64 kg

DRUGS (12)
  1. OCREVUS [Suspect]
     Active Substance: OCRELIZUMAB
     Indication: Relapsing-remitting multiple sclerosis
     Dosage: HAD FIRST 2 DOSES 2 WEEKS APART, THEN 2 TIMES PER YEAR.
     Route: 042
  2. MODERNA COVID-19 VACCINE [Concomitant]
     Active Substance: ELASOMERAN
  3. PFIZER-BIONTECH COVID-19 VACCINE [Concomitant]
     Active Substance: TOZINAMERAN
  4. DICLOFENAC SODIUM [Concomitant]
     Active Substance: DICLOFENAC\DICLOFENAC SODIUM
  5. DULOXETINE [Concomitant]
     Active Substance: DULOXETINE
  6. BACLOFEN [Concomitant]
     Active Substance: BACLOFEN
  7. ALPHA LIPOIC ACID [Concomitant]
     Active Substance: .ALPHA.-LIPOIC ACID
  8. MAGNESIUM [Concomitant]
     Active Substance: MAGNESIUM
  9. SUPER VITAMIN B COMPLEX [Concomitant]
  10. VITAMIN D3 [Concomitant]
     Active Substance: CHOLECALCIFEROL
  11. ATORVASTATIN [Concomitant]
     Active Substance: ATORVASTATIN
  12. VARICELLA-ZOSTER VACCINE NOS [Concomitant]
     Active Substance: VARICELLA-ZOSTER VACCINE

REACTIONS (1)
  - COVID-19 [Recovered/Resolved]

NARRATIVE: CASE EVENT DATE: 20240105
